FAERS Safety Report 8833286 (Version 2)
Quarter: 2012Q4

REPORT INFORMATION
  Report Type: Report from Study
  Country: US (occurrence: US)
  Receive Date: 20121010
  Receipt Date: 20121128
  Transmission Date: 20130627
  Serious: No
  Sender: FDA-Public Use
  Company Number: US-VERTEX PHARMACEUTICAL INC.-2012-021534

PATIENT
  Sex: Female
  Weight: 80 kg

DRUGS (3)
  1. VX-950 (TELAPREVIR) [Suspect]
     Indication: HEPATITIS C
     Dosage: 750 mg, tid
     Route: 048
     Dates: start: 20120518
  2. RIBASPHERE [Concomitant]
     Indication: HEPATITIS C
     Dosage: 200mg QAM, 400mg QPM
     Route: 048
     Dates: start: 20120518, end: 20121120
  3. PEGASYS PROCLICK [Concomitant]
     Indication: HEPATITIS C
     Dosage: 180 ?g, qw
     Route: 058
     Dates: start: 20120518, end: 20121120

REACTIONS (2)
  - Adverse event [Unknown]
  - Pyrexia [Recovered/Resolved]
